FAERS Safety Report 10257964 (Version 3)
Quarter: 2014Q3

REPORT INFORMATION
  Report Type: Spontaneous
  Country: RO (occurrence: RO)
  Receive Date: 20140625
  Receipt Date: 20140814
  Transmission Date: 20150326
  Serious: Yes (Hospitalization, Other)
  Sender: FDA-Public Use
  Company Number: RO-NOVOPROD-413742

PATIENT
  Age: 36 Year
  Sex: Female
  Weight: 68 kg

DRUGS (4)
  1. FOLIC ACID. [Concomitant]
     Active Substance: FOLIC ACID
     Dosage: 0.4 MG, QD
     Route: 065
  2. ACTRAPID [Suspect]
     Active Substance: INSULIN HUMAN
     Indication: TYPE 1 DIABETES MELLITUS
     Dosage: 3 INJECTIONS DAILY (1-1.6U/KGC BASAL-BOLUS)
     Route: 058
     Dates: start: 20100601
  3. ACTRAPID [Suspect]
     Active Substance: INSULIN HUMAN
     Dosage: DOSE DECREASED
     Route: 058
     Dates: end: 20110104
  4. NPH INSULIN [Concomitant]
     Active Substance: INSULIN BEEF
     Indication: TYPE 1 DIABETES MELLITUS
     Dosage: 1-1.6U/KGC (BASAL-BOLUS INSULIN)
     Route: 058

REACTIONS (5)
  - Premature delivery [Recovered/Resolved]
  - Hypoglycaemia [Recovered/Resolved]
  - Uterine hypertonus [Recovered/Resolved]
  - Oligohydramnios [Recovered/Resolved]
  - Exposure during pregnancy [Recovered/Resolved]

NARRATIVE: CASE EVENT DATE: 20100601
